APPROVED DRUG PRODUCT: KETAMINE HYDROCHLORIDE
Active Ingredient: KETAMINE HYDROCHLORIDE
Strength: EQ 50MG BASE/ML
Dosage Form/Route: INJECTABLE;INJECTION
Application: A074524 | Product #001 | TE Code: AP
Applicant: HIKMA PHARMACEUTICALS USA INC
Approved: Mar 22, 1996 | RLD: No | RS: Yes | Type: RX